FAERS Safety Report 7660741-X (Version None)
Quarter: 2011Q3

REPORT INFORMATION
  Report Type: 
  Country: None (occurrence: None)
  Receive Date: 20110805
  Receipt Date: 20101103
  Transmission Date: 20111222
  Serious: No
  Sender: FDA-Public Use
  Company Number: US-ABBOTT-10P-163-0682992-00

PATIENT
  Sex: Female
  Weight: 83.536 kg

DRUGS (15)
  1. CLARITIN-D 24 HOUR [Concomitant]
     Indication: PRODUCT USED FOR UNKNOWN INDICATION
  2. PRILOSEC [Concomitant]
     Indication: GASTROOESOPHAGEAL REFLUX DISEASE
  3. OXYBUTYNIN [Concomitant]
     Indication: URINARY TRACT DISORDER
  4. ALBUTEROL SULFATE AUTOHALER [Concomitant]
     Indication: PRODUCT USED FOR UNKNOWN INDICATION
     Dosage: 3-4 X/ DAY/ONLY USES PRN
  5. ALBUTEROL BREATHING TX [Concomitant]
     Indication: ASTHMA
  6. VIT D [Concomitant]
     Indication: PRODUCT USED FOR UNKNOWN INDICATION
  7. LOVAZA [Concomitant]
     Indication: BLOOD CHOLESTEROL
  8. SOTALOL HCL [Concomitant]
     Indication: CARDIAC DISORDER
  9. METAMUCIL-2 [Concomitant]
     Indication: PRODUCT USED FOR UNKNOWN INDICATION
  10. MAGNESIUM OXIDE [Concomitant]
     Indication: PRODUCT USED FOR UNKNOWN INDICATION
  11. GLUCOPHAGE [Concomitant]
     Indication: DIABETES MELLITUS
  12. GABAPENTIN [Concomitant]
     Indication: INSOMNIA
     Dosage: PRN
  13. NIASPAN [Suspect]
     Indication: BLOOD CHOLESTEROL INCREASED
     Dates: start: 20101011
  14. IBUPROFEN [Concomitant]
     Indication: PRODUCT USED FOR UNKNOWN INDICATION
  15. LIPITOR [Concomitant]
     Indication: BLOOD CHOLESTEROL

REACTIONS (4)
  - NAUSEA [None]
  - VOMITING [None]
  - FLUSHING [None]
  - DIZZINESS [None]
